FAERS Safety Report 7488371-3 (Version None)
Quarter: 2011Q2

REPORT INFORMATION
  Report Type: 
  Country: None (occurrence: None)
  Receive Date: 20110518
  Receipt Date: 20110511
  Transmission Date: 20111010
  Serious: Yes (Hospitalization)
  Sender: FDA-Public Use
  Company Number: US-JNJFOC-20110506411

PATIENT
  Sex: Female

DRUGS (1)
  1. LEVAQUIN [Suspect]
     Indication: PRODUCT USED FOR UNKNOWN INDICATION
     Route: 065

REACTIONS (6)
  - SENSORY LOSS [None]
  - INSOMNIA [None]
  - PARAESTHESIA [None]
  - BLADDER DISORDER [None]
  - HALLUCINATION [None]
  - HEMIPLEGIA [None]
